FAERS Safety Report 9525615 (Version 2)
Quarter: 2013Q3

REPORT INFORMATION
  Report Type: Spontaneous
  Country: JP (occurrence: JP)
  Receive Date: 20130916
  Receipt Date: 20130916
  Transmission Date: 20140515
  Serious: Yes (Death, Other)
  Sender: FDA-Public Use
  Company Number: JP-SANOFI-AVENTIS-CLOF-1002734

PATIENT
  Age: 16 Year
  Sex: Male

DRUGS (13)
  1. CLOFARABINE [Suspect]
     Indication: ACUTE LYMPHOCYTIC LEUKAEMIA
     Dosage: 50 MG, QD
     Route: 065
     Dates: start: 20130702, end: 20130706
  2. ASPARAGINASE [Suspect]
     Indication: ACUTE LYMPHOCYTIC LEUKAEMIA
     Dosage: UNK
     Route: 065
     Dates: start: 20130702, end: 20130706
  3. GRANULOCYTE COLONY STIMULATING FACTOR [Concomitant]
     Indication: PRODUCT USED FOR UNKNOWN INDICATION
     Dosage: UNK
     Route: 065
  4. IMMUNOGLOBULIN [Concomitant]
     Indication: PRODUCT USED FOR UNKNOWN INDICATION
     Dosage: UNK
     Route: 065
  5. TOSUFLOXACIN TOSILATE [Concomitant]
     Indication: PROPHYLAXIS
     Dosage: UNK
     Route: 048
     Dates: end: 20130716
  6. FLUCONAZOLE [Concomitant]
     Indication: PROPHYLAXIS
     Dosage: UNK
     Route: 065
     Dates: end: 20130716
  7. DEXART [Concomitant]
     Indication: ACUTE LYMPHOCYTIC LEUKAEMIA
  8. NOVANTRON [Concomitant]
     Indication: ACUTE LYMPHOCYTIC LEUKAEMIA
  9. VEPESID [Concomitant]
     Indication: ACUTE LYMPHOCYTIC LEUKAEMIA
  10. LEUNASE [Concomitant]
     Indication: ACUTE LYMPHOCYTIC LEUKAEMIA
  11. METHOTREXATE [Concomitant]
     Indication: ACUTE LYMPHOCYTIC LEUKAEMIA
  12. CYCLOSIDE [Concomitant]
     Indication: ACUTE LYMPHOCYTIC LEUKAEMIA
  13. SAXIZON [Concomitant]
     Indication: ACUTE LYMPHOCYTIC LEUKAEMIA

REACTIONS (5)
  - Pleural infection [Fatal]
  - Neutropenia [Recovered/Resolved with Sequelae]
  - Platelet count decreased [Not Recovered/Not Resolved]
  - Anaemia [Not Recovered/Not Resolved]
  - Febrile neutropenia [Not Recovered/Not Resolved]
